FAERS Safety Report 16162584 (Version 2)
Quarter: 2019Q2

REPORT INFORMATION
  Report Type: Report from Study
  Country: None (occurrence: US)
  Receive Date: 20190405
  Receipt Date: 20190409
  Transmission Date: 20190711
  Serious: Yes (Hospitalization, Other)
  Sender: FDA-Public Use
  Company Number: US-ABBVIE-19K-163-2729970-00

PATIENT
  Age: 66 Year
  Sex: Female
  Weight: 68.1 kg

DRUGS (8)
  1. PROPRANOLOL [Suspect]
     Active Substance: PROPRANOLOL HYDROCHLORIDE
     Indication: PRODUCT USED FOR UNKNOWN INDICATION
     Route: 065
  2. HUMIRA [Suspect]
     Active Substance: ADALIMUMAB
     Indication: PSORIATIC ARTHROPATHY
     Route: 058
     Dates: start: 2011, end: 2012
  3. HUMIRA [Suspect]
     Active Substance: ADALIMUMAB
     Indication: PSORIASIS
     Route: 058
     Dates: start: 2012, end: 2018
  4. METHOTREXATE. [Suspect]
     Active Substance: METHOTREXATE
     Dosage: DOSAGE DECREASED
     Route: 065
  5. HUMIRA [Suspect]
     Active Substance: ADALIMUMAB
     Route: 058
     Dates: start: 2018
  6. PROPRANOLOL [Suspect]
     Active Substance: PROPRANOLOL HYDROCHLORIDE
     Dosage: DOSAGE DECREASED
     Route: 065
  7. METHOTREXATE. [Suspect]
     Active Substance: METHOTREXATE
     Indication: PSORIATIC ARTHROPATHY
     Route: 065
  8. METFORMIN [Concomitant]
     Active Substance: METFORMIN HYDROCHLORIDE
     Indication: DIABETES MELLITUS

REACTIONS (9)
  - Pancreatitis [Recovered/Resolved with Sequelae]
  - Psoriasis [Not Recovered/Not Resolved]
  - Pancreatitis [Recovered/Resolved]
  - Memory impairment [Not Recovered/Not Resolved]
  - Pancreatitis [Recovered/Resolved]
  - Diabetes mellitus [Not Recovered/Not Resolved]
  - Device issue [Unknown]
  - Pancreatitis [Recovered/Resolved]
  - Diabetic glaucoma [Recovered/Resolved]

NARRATIVE: CASE EVENT DATE: 2012
